FAERS Safety Report 7533449-9 (Version None)
Quarter: 2011Q2

REPORT INFORMATION
  Report Type: 
  Country: None (occurrence: None)
  Receive Date: 20110608
  Receipt Date: 20110526
  Transmission Date: 20111010
  Serious: Yes (Other)
  Sender: FDA-Public Use
  Company Number: DK-MYLANLABS-2011S1011172

PATIENT
  Age: 33 Year
  Sex: Female
  Weight: 87 kg

DRUGS (1)
  1. VENLAFAXINE [Suspect]
     Indication: DEPRESSION
     Route: 048
     Dates: start: 20090901

REACTIONS (5)
  - WEIGHT INCREASED [None]
  - FATIGUE [None]
  - TRISMUS [None]
  - EYE INFECTION [None]
  - LOSS OF LIBIDO [None]
